FAERS Safety Report 8281688-4 (Version None)
Quarter: 2012Q2

REPORT INFORMATION
  Report Type: 
  Country: None (occurrence: None)
  Receive Date: 20120410
  Receipt Date: 20120330
  Transmission Date: 20120825
  Serious: Yes (Death, Hospitalization)
  Sender: FDA-Public Use
  Company Number: AUR-APL-2012-01648

PATIENT
  Age: 58 Year
  Sex: Male
  Weight: 52 kg

DRUGS (11)
  1. ACETAMINOPHEN W/ CODEINE [Concomitant]
  2. LEVOTHYROXINE SODIUM [Concomitant]
  3. LOPERAMIDE [Concomitant]
  4. SIMVASTATIN [Suspect]
     Indication: BLOOD CHOLESTEROL INCREASED
     Dosage: (20 MG),ORAL
     Route: 048
     Dates: end: 20120303
  5. NOVOMIX (INSULIN ASPART) [Concomitant]
  6. CYCLOSPORINE [Concomitant]
  7. FERROUS FUMARATE [Concomitant]
  8. ASPIRIN [Concomitant]
  9. DOMPERIDONE (DOMPERIDONE) [Concomitant]
  10. E-45 (DIHYDROERGOTAMINE MESILATE) [Concomitant]
  11. FUROSEMIDE [Concomitant]

REACTIONS (3)
  - RHABDOMYOLYSIS [None]
  - KIDNEY TRANSPLANT REJECTION [None]
  - HYPERKALAEMIA [None]
